FAERS Safety Report 13627052 (Version 3)
Quarter: 2017Q3

REPORT INFORMATION
  Report Type: Spontaneous
  Country: IT (occurrence: IT)
  Receive Date: 20170608
  Receipt Date: 20170912
  Transmission Date: 20171127
  Serious: Yes (Hospitalization, Other)
  Sender: FDA-Public Use
  Company Number: IT-BRISTOL-MYERS SQUIBB COMPANY-BMS-2017-049275

PATIENT
  Age: 66 Year
  Sex: Female

DRUGS (1)
  1. OPDIVO [Suspect]
     Active Substance: NIVOLUMAB
     Indication: LUNG ADENOCARCINOMA
     Dosage: 210 MG, Q2WK
     Route: 042
     Dates: start: 20170414, end: 20170503

REACTIONS (11)
  - Muscular weakness [Unknown]
  - Polymyositis [Unknown]
  - Asthenia [Unknown]
  - Pneumonia [Recovering/Resolving]
  - Cardiac pacemaker insertion [Unknown]
  - Arrhythmia [Unknown]
  - Atrioventricular dissociation [Unknown]
  - Hepatitis [Unknown]
  - Diarrhoea [Unknown]
  - Atrioventricular block complete [Unknown]
  - Hypothyroidism [Unknown]

NARRATIVE: CASE EVENT DATE: 20170531
